FAERS Safety Report 5138594-3 (Version None)
Quarter: 2006Q4

REPORT INFORMATION
  Report Type: 
  Country: None (occurrence: None)
  Receive Date: 20061023
  Receipt Date: 20061004
  Transmission Date: 20070319
  Serious: Yes (Other)
  Sender: FDA-Public Use
  Company Number: US200603000151

PATIENT
  Age: 61 Year
  Sex: Female
  Weight: 86.2 kg

DRUGS (2)
  1. ZYPREXA [Suspect]
     Indication: DEPRESSION
     Dates: start: 20010601
  2. ATENOLOL [Concomitant]

REACTIONS (9)
  - BLOOD CHOLESTEROL ABNORMAL [None]
  - DIABETES MELLITUS NON-INSULIN-DEPENDENT [None]
  - GLYCOSURIA [None]
  - HYPERTENSION [None]
  - HYPOGLYCAEMIA [None]
  - MYOCARDIAL ISCHAEMIA [None]
  - OBESITY [None]
  - VISION BLURRED [None]
  - WEIGHT INCREASED [None]
